FAERS Safety Report 8908388 (Version 1)
Quarter: 2012Q4

REPORT INFORMATION
  Report Type: 
  Country: RU (occurrence: RU)
  Receive Date: 20121114
  Receipt Date: 20121114
  Transmission Date: 20130627
  Serious: Yes (Life-Threatening, Other)
  Sender: FDA-Public Use
  Company Number: PHHY2012RU104833

PATIENT
  Age: 15 Year

DRUGS (13)
  1. CICLOSPORIN [Suspect]
     Indication: PROPHYLAXIS AGAINST GRAFT VERSUS HOST DISEASE
  2. CELLCEPT [Suspect]
     Indication: PROPHYLAXIS AGAINST GRAFT VERSUS HOST DISEASE
  3. METHYLPREDNISOLONE [Suspect]
     Indication: PROPHYLAXIS AGAINST GRAFT VERSUS HOST DISEASE
     Dosage: 1 mg/kg, UNK
  4. CYCLOPHOSPHAMIDE [Concomitant]
     Indication: SURGICAL PRECONDITIONING
  5. ATGAM [Concomitant]
     Indication: SURGICAL PRECONDITIONING
  6. FLUDARABINE [Concomitant]
     Indication: SURGICAL PRECONDITIONING
  7. RITUXIMAB [Concomitant]
     Indication: SURGICAL PRECONDITIONING
  8. ANTIFUNGAL DRUGS [Concomitant]
     Indication: PROPHYLAXIS
  9. AMOXICILLIN [Concomitant]
     Indication: ANTIBIOTIC PROPHYLAXIS
  10. CIPROFLOXACIN [Concomitant]
     Indication: ANTIBIOTIC PROPHYLAXIS
  11. TRIMETOPRIM SULFAMETOXAZOL [Concomitant]
     Indication: PROPHYLAXIS
  12. VALACICLOVIR [Concomitant]
     Indication: PROPHYLAXIS
  13. GRANULOCYTE STIMULATING FACTORS [Concomitant]
     Indication: PROPHYLAXIS

REACTIONS (4)
  - Pneumocystis jiroveci pneumonia [Unknown]
  - Febrile neutropenia [Unknown]
  - Engraft failure [Unknown]
  - Cytomegalovirus viraemia [Recovered/Resolved]
